FAERS Safety Report 5389511-2 (Version None)
Quarter: 2007Q3

REPORT INFORMATION
  Report Type: 
  Country: None (occurrence: None)
  Receive Date: 20070717
  Receipt Date: 20070713
  Transmission Date: 20080115
  Serious: Yes (Other)
  Sender: FDA-Public Use
  Company Number: PE-BRISTOL-MYERS SQUIBB COMPANY-13845854

PATIENT
  Age: 65 Year
  Sex: Female

DRUGS (4)
  1. ABATACEPT [Suspect]
     Indication: RHEUMATOID ARTHRITIS
     Dates: start: 20030611
  2. METHOTREXATE [Concomitant]
     Dates: start: 19980501, end: 20070711
  3. PREDNISONE [Concomitant]
     Dates: start: 19980501
  4. CELECOXIB [Concomitant]
     Dates: start: 20070613

REACTIONS (1)
  - FEBRILE NEUTROPENIA [None]
